FAERS Safety Report 6808501-3 (Version None)
Quarter: 2010Q2

REPORT INFORMATION
  Report Type: 
  Country: None (occurrence: None)
  Receive Date: 20100629
  Receipt Date: 20090709
  Transmission Date: 20101027
  Serious: No
  Sender: FDA-Public Use
  Company Number: US-PFIZER INC-2009238965

PATIENT
  Sex: Female

DRUGS (6)
  1. TIKOSYN [Suspect]
  2. DILTIAZEM HCL [Suspect]
  3. WARFARIN [Suspect]
  4. TOPROL-XL [Suspect]
  5. COZAAR [Suspect]
  6. WELCHOL [Suspect]

REACTIONS (1)
  - DYSPNOEA [None]
